FAERS Safety Report 6468933-2 (Version None)
Quarter: 2009Q4

REPORT INFORMATION
  Report Type: 
  Country: None (occurrence: None)
  Receive Date: 20091203
  Receipt Date: 20090225
  Transmission Date: 20100525
  Serious: Yes (Hospitalization, Other)
  Sender: FDA-Public Use
  Company Number: US-ELI_LILLY_AND_COMPANY-USA040465522

PATIENT
  Sex: Female
  Weight: 75 kg

DRUGS (14)
  1. FORTEO [Suspect]
     Indication: OSTEOPOROSIS
     Dosage: 20 UG, DAILY (1/D)
     Dates: start: 20030203, end: 20031123
  2. HUMULIN R [Suspect]
     Dosage: 30 U, DAILY (1/D)
  3. HUMULIN R [Suspect]
     Dosage: 24 U, DAILY (1/D)
  4. EVISTA [Suspect]
     Dosage: 60 MG, DAILY (1/D)
  5. PREDNISONE [Concomitant]
     Indication: POLYMYALGIA RHEUMATICA
     Dosage: 10 MG, UNKNOWN
  6. SYNTHROID [Concomitant]
     Indication: THYROID DISORDER
     Dosage: 75 UG, DAILY (1/D)
  7. CALCIUM [Concomitant]
     Dosage: 1500 MG, DAILY (1/D)
  8. PRAVACHOL [Concomitant]
     Indication: BLOOD CHOLESTEROL
     Dosage: 20 MG, DAILY (1/D)
  9. FOSAMAX [Concomitant]
     Dosage: UNK, UNKNOWN
  10. LOTENSIN HCT [Concomitant]
     Dosage: UNK, UNKNOWN
  11. VIOXX [Concomitant]
     Dosage: 25 MG, DAILY (1/D)
  12. PEPCID [Concomitant]
     Dosage: UNK, AS NEEDED
  13. ASPIRIN [Concomitant]
     Dosage: 81 MG, DAILY (1/D)
  14. OS-CAL + D [Concomitant]
     Dosage: UNK, 3/D

REACTIONS (11)
  - BLOOD CHOLESTEROL INCREASED [None]
  - BODY HEIGHT DECREASED [None]
  - CHONDROSARCOMA [None]
  - COLONIC PSEUDO-OBSTRUCTION [None]
  - DYSPHAGIA [None]
  - HIP FRACTURE [None]
  - HYPERTENSION [None]
  - OSTEOPOROSIS [None]
  - POLYMYALGIA RHEUMATICA [None]
  - SPINAL FRACTURE [None]
  - WOUND DEHISCENCE [None]
